FAERS Safety Report 7500539-6 (Version None)
Quarter: 2011Q2

REPORT INFORMATION
  Report Type: 
  Country: None (occurrence: None)
  Receive Date: 20110524
  Receipt Date: 20110509
  Transmission Date: 20111010
  Serious: No
  Sender: FDA-Public Use
  Company Number: US-B.I. PHARMACEUTICALS,INC./RIDGEFIELD-2011-BP-12639BP

PATIENT
  Sex: Female

DRUGS (8)
  1. LASIX [Concomitant]
     Indication: HYPERTENSION
  2. PREVACID [Concomitant]
     Indication: GASTROOESOPHAGEAL REFLUX DISEASE
  3. SPIRIVA [Suspect]
     Indication: CHRONIC OBSTRUCTIVE PULMONARY DISEASE
     Dosage: 18 MCG
     Route: 055
     Dates: start: 20110506
  4. METFORMIN HCL [Concomitant]
     Indication: DIABETES MELLITUS
  5. GLIPIZIDE [Concomitant]
     Indication: DIABETES MELLITUS
  6. NORVASC [Concomitant]
     Indication: HYPERTENSION
  7. LOVASTATIN [Concomitant]
     Indication: DYSLIPIDAEMIA
  8. COREG [Concomitant]
     Indication: HYPERTENSION

REACTIONS (1)
  - LIP DISCOLOURATION [None]
